FAERS Safety Report 12202310 (Version 9)
Quarter: 2019Q2

REPORT INFORMATION
  Report Type: Report from Study
  Country: PA (occurrence: PA)
  Receive Date: 20160322
  Receipt Date: 20190620
  Transmission Date: 20190711
  Serious: Yes (Hospitalization)
  Sender: FDA-Public Use
  Company Number: PHHY2015PA105640

PATIENT
  Sex: Male
  Weight: 37 kg

DRUGS (7)
  1. EXJADE [Suspect]
     Active Substance: DEFERASIROX
     Dosage: 250 MG, UNK
     Route: 065
  2. EXJADE [Suspect]
     Active Substance: DEFERASIROX
     Dosage: 500 MG, QD
     Route: 048
  3. EXJADE [Suspect]
     Active Substance: DEFERASIROX
     Dosage: 500 MG, UNK
     Route: 048
  4. HYDROXYUREA. [Concomitant]
     Active Substance: HYDROXYUREA
     Indication: PRODUCT USED FOR UNKNOWN INDICATION
     Dosage: 500 MG, QD
     Route: 048
  5. EXJADE [Suspect]
     Active Substance: DEFERASIROX
     Indication: SICKLE CELL ANAEMIA
     Dosage: 1000 MG
     Route: 048
     Dates: start: 2015
  6. EXJADE [Suspect]
     Active Substance: DEFERASIROX
     Dosage: 750 MG, UNK
     Route: 048
  7. ASPIRIN. [Concomitant]
     Active Substance: ASPIRIN
     Indication: PRODUCT USED FOR UNKNOWN INDICATION
     Dosage: 100 MG, QD
     Route: 048

REACTIONS (15)
  - Abdominal pain upper [Unknown]
  - Blood iron decreased [Unknown]
  - Drug intolerance [Unknown]
  - Inappropriate schedule of product administration [Unknown]
  - Pneumonia [Recovering/Resolving]
  - Nausea [Unknown]
  - Bronchitis [Recovering/Resolving]
  - Sickle cell anaemia [Recovering/Resolving]
  - Pyrexia [Recovering/Resolving]
  - Serum ferritin increased [Recovered/Resolved]
  - Burning sensation [Unknown]
  - Red blood cell count increased [Recovering/Resolving]
  - Vomiting [Unknown]
  - Abdominal discomfort [Unknown]
  - Gastritis [Unknown]
